FAERS Safety Report 8230338-1 (Version None)
Quarter: 2012Q1

REPORT INFORMATION
  Report Type: 
  Country: None (occurrence: None)
  Receive Date: 20120322
  Receipt Date: 20120322
  Transmission Date: 20120608
  Serious: Yes (Other)
  Sender: FDA-Public Use
  Company Number: None

PATIENT
  Age: 61 Year
  Sex: Female
  Weight: 52.1637 kg

DRUGS (1)
  1. MORPHINE [Suspect]
     Indication: SPINAL DISORDER
     Dosage: 60MG 3 TABS 1QD PO
     Route: 048
     Dates: start: 20120210

REACTIONS (4)
  - PAIN [None]
  - VOMITING [None]
  - NAUSEA [None]
  - DRUG WITHDRAWAL SYNDROME [None]
